FAERS Safety Report 5930256-5 (Version None)
Quarter: 2008Q4

REPORT INFORMATION
  Report Type: 
  Country: None (occurrence: None)
  Receive Date: 20081024
  Receipt Date: 20081014
  Transmission Date: 20090506
  Serious: Yes (Other)
  Sender: FDA-Public Use
  Company Number: US-PFIZER INC-2008087865

PATIENT
  Age: 55 Year
  Sex: Female

DRUGS (1)
  1. CHANTIX [Suspect]

REACTIONS (19)
  - ABDOMINAL DISTENSION [None]
  - ABNORMAL BEHAVIOUR [None]
  - BACK DISORDER [None]
  - BLISTER [None]
  - BONE DENSITY DECREASED [None]
  - CHEST PAIN [None]
  - CONFUSIONAL STATE [None]
  - FEAR [None]
  - IMPAIRED DRIVING ABILITY [None]
  - INTERVERTEBRAL DISC DISORDER [None]
  - IRRITABILITY [None]
  - MOBILITY DECREASED [None]
  - MUSCLE SPASMS [None]
  - OSTEOPOROSIS [None]
  - PAIN [None]
  - UNEVALUABLE EVENT [None]
  - VISUAL IMPAIRMENT [None]
  - VOMITING [None]
  - WEIGHT INCREASED [None]
